FAERS Safety Report 8589398-0 (Version None)
Quarter: 2012Q3

REPORT INFORMATION
  Report Type: 
  Country: None (occurrence: None)
  Receive Date: 20120813
  Receipt Date: 20120807
  Transmission Date: 20120928
  Serious: Yes (Other)
  Sender: FDA-Public Use
  Company Number: DE-SANOFI-AVENTIS-2012SA056575

PATIENT
  Age: 45 Year
  Sex: Female

DRUGS (1)
  1. HYDROXYCHLOROQUINE SULFATE [Suspect]
     Indication: SCLERODERMA
     Route: 048

REACTIONS (6)
  - HEART RATE IRREGULAR [None]
  - VISUAL IMPAIRMENT [None]
  - PARAESTHESIA [None]
  - PALPITATIONS [None]
  - RESTLESSNESS [None]
  - WITHDRAWAL ARRHYTHMIA [None]
